FAERS Safety Report 13796164 (Version 2)
Quarter: 2019Q2

REPORT INFORMATION
  Report Type: Spontaneous
  Country: GB (occurrence: GB)
  Receive Date: 20170726
  Receipt Date: 20190416
  Transmission Date: 20190711
  Serious: Yes (Death, Hospitalization, Other)
  Sender: FDA-Public Use
  Company Number: GB-ALLERGAN-1731184US

PATIENT
  Sex: Male

DRUGS (1)
  1. BOTOX [Suspect]
     Active Substance: ONABOTULINUMTOXINA
     Indication: MUSCLE SPASTICITY
     Dosage: ACTUAL: 100 UNITS IN RIGHT BICEPS, 50 UNITIS IN RIGHT BRACHIALIS, 50 UNITS IN RIGHT BRACHIORADIALIS
     Route: 030
     Dates: start: 20170712, end: 20170712

REACTIONS (3)
  - Pneumonia [Fatal]
  - Oxygen saturation decreased [Unknown]
  - Pulmonary oedema [Unknown]

NARRATIVE: CASE EVENT DATE: 201707
